FAERS Safety Report 25914358 (Version 1)
Quarter: 2025Q4

REPORT INFORMATION
  Report Type: Report from Study
  Country: PH (occurrence: PH)
  Receive Date: 20251013
  Receipt Date: 20251013
  Transmission Date: 20260117
  Serious: Yes (Death)
  Sender: OTSUKA
  Company Number: PH-MMM-Otsuka-9YMJ51GK

PATIENT

DRUGS (3)
  1. TOLVAPTAN [Suspect]
     Active Substance: TOLVAPTAN
     Indication: Swelling
     Dosage: 0.5 DF, DAILY (15 MG TABLET 1/2 TABLET A DAY)
     Dates: start: 202208
  2. TOLVAPTAN [Suspect]
     Active Substance: TOLVAPTAN
     Indication: Blood creatinine increased
     Dosage: 1 DF, DAILY (15 MG 1 TABLET A DAY)
  3. TOLVAPTAN [Suspect]
     Active Substance: TOLVAPTAN
     Indication: Oedema

REACTIONS (1)
  - Death [Fatal]
